FAERS Safety Report 10502720 (Version 4)
Quarter: 2015Q2

REPORT INFORMATION
  Report Type: Spontaneous
  Country: US (occurrence: US)
  Receive Date: 20141007
  Receipt Date: 20150615
  Transmission Date: 20150821
  Serious: Yes (Hospitalization)
  Sender: FDA-Public Use
  Company Number: US-BAYER-2014-148054

PATIENT
  Age: 30 Year
  Sex: Female
  Weight: 54.42 kg

DRUGS (1)
  1. MIRENA [Suspect]
     Active Substance: LEVONORGESTREL
     Indication: CONTRACEPTION
     Dosage: 20 MCG/24HR, CONT
     Route: 015
     Dates: start: 20081203, end: 20090217

REACTIONS (4)
  - Uterine perforation [None]
  - Injury [None]
  - Pain [None]
  - Device issue [None]

NARRATIVE: CASE EVENT DATE: 200902
